FAERS Safety Report 8920099 (Version 1)
Quarter: 2012Q4

REPORT INFORMATION
  Report Type: Report from Study
  Country: US (occurrence: US)
  Receive Date: 20121121
  Receipt Date: 20121121
  Transmission Date: 20130627
  Serious: Yes (Hospitalization)
  Sender: FDA-Public Use
  Company Number: US-BRISTOL-MYERS SQUIBB COMPANY-17119256

PATIENT
  Age: 18 Year
  Sex: Female
  Weight: 63.9 kg

DRUGS (6)
  1. ETOPOSIDE [Suspect]
     Indication: RHABDOMYOSARCOMA
  2. IFOSFAMIDE [Suspect]
     Indication: RHABDOMYOSARCOMA
  3. VINCRISTINE [Suspect]
     Indication: RHABDOMYOSARCOMA
     Dosage: total:12mg,14mg
     Route: 042
     Dates: start: 20120406
  4. IRINOTECAN [Suspect]
     Indication: RHABDOMYOSARCOMA
     Dosage: total 965mg
     Route: 042
     Dates: start: 20120406
  5. CYCLOPHOSPHAMIDE [Suspect]
     Indication: RHABDOMYOSARCOMA
     Dosage: total 6460 mg,2200mg during course
     Route: 042
     Dates: start: 20120406
  6. DOXORUBICIN [Suspect]
     Indication: RHABDOMYOSARCOMA
     Dates: start: 20120406

REACTIONS (15)
  - Weight decreased [Recovering/Resolving]
  - Stomatitis [Recovering/Resolving]
  - Rectal haemorrhage [Recovering/Resolving]
  - Rectal fissure [Recovering/Resolving]
  - White blood cell count decreased [Recovering/Resolving]
  - Neutrophil count decreased [Recovering/Resolving]
  - Anaemia [Recovering/Resolving]
  - Platelet count decreased [Recovering/Resolving]
  - Pleural effusion [Recovering/Resolving]
  - Clostridium difficile colitis [Recovering/Resolving]
  - Epistaxis [Recovering/Resolving]
  - Gastritis haemorrhagic [Recovering/Resolving]
  - Oesophagitis [Recovering/Resolving]
  - Nausea [Recovering/Resolving]
  - Vomiting [Recovering/Resolving]
